FAERS Safety Report 23130669 (Version 5)
Quarter: 2024Q4

REPORT INFORMATION
  Report Type: Report from Study
  Country: US (occurrence: US)
  Receive Date: 20231031
  Receipt Date: 20241212
  Transmission Date: 20250114
  Serious: Yes (Hospitalization, Other)
  Sender: SANOFI AVENTIS
  Company Number: US-SA-SAC20231026000698

PATIENT
  Age: 63 Year
  Sex: Male

DRUGS (5)
  1. LOVENOX [Suspect]
     Active Substance: ENOXAPARIN SODIUM
     Indication: Deep vein thrombosis
     Dosage: UNK, QD
     Route: 058
     Dates: start: 20230824
  2. LOVENOX [Suspect]
     Active Substance: ENOXAPARIN SODIUM
     Indication: Phlebitis
     Dosage: 100 MG, BID
     Route: 058
  3. LOVENOX [Suspect]
     Active Substance: ENOXAPARIN SODIUM
     Indication: Thrombophlebitis
  4. LOVENOX [Suspect]
     Active Substance: ENOXAPARIN SODIUM
     Indication: Embolism venous
  5. HEPARIN [Concomitant]
     Active Substance: HEPARIN SODIUM
     Dosage: UNK

REACTIONS (7)
  - Cardiovascular deconditioning [Unknown]
  - Thrombosis [Unknown]
  - Pulmonary embolism [Unknown]
  - Pneumonia [Unknown]
  - Hospitalisation [Unknown]
  - Drug ineffective [Unknown]
  - Off label use [Unknown]

NARRATIVE: CASE EVENT DATE: 20230101
